FAERS Safety Report 9706827 (Version 1)
Quarter: 2013Q4

REPORT INFORMATION
  Report Type: Spontaneous
  Country: US (occurrence: None)
  Receive Date: 20131122
  Receipt Date: 20131122
  Transmission Date: 20140711
  Serious: Yes (Other)
  Sender: FDA-Public Use
  Company Number: None

PATIENT
  Age: 87 Year
  Sex: Male
  Weight: 74.84 kg

DRUGS (1)
  1. TAMSULOSIN [Suspect]
     Indication: BENIGN PROSTATIC HYPERPLASIA
     Dosage: 2 PILLS EVERY NIGHT AT BEDTIME TAKEN BY MOUTH
     Route: 048
     Dates: start: 20131113, end: 20131118

REACTIONS (2)
  - Blood pressure increased [None]
  - Product substitution issue [None]
